FAERS Safety Report 12433091 (Version 5)
Quarter: 2017Q1

REPORT INFORMATION
  Report Type: Spontaneous
  Country: CZ (occurrence: CZ)
  Receive Date: 20160603
  Receipt Date: 20170110
  Transmission Date: 20170428
  Serious: Yes (Death, Other)
  Sender: FDA-Public Use
  Company Number: CZ-JNJFOC-20160524761

PATIENT
  Age: 46 Year
  Sex: Male

DRUGS (5)
  1. BONEFOS [Concomitant]
     Active Substance: CLODRONATE DISODIUM
  2. DARATUMUMAB [Suspect]
     Active Substance: DARATUMUMAB
     Indication: MANTLE CELL LYMPHOMA
     Route: 042
     Dates: start: 20160512
  3. CALCIUM [Concomitant]
     Active Substance: CALCIUM
  4. WARFARIN [Concomitant]
     Active Substance: WARFARIN
  5. INSULIN [Concomitant]
     Active Substance: INSULIN NOS

REACTIONS (4)
  - Disease progression [Fatal]
  - Tumour lysis syndrome [Fatal]
  - Lung disorder [Unknown]
  - Bronchospasm [Unknown]

NARRATIVE: CASE EVENT DATE: 20160512
